FAERS Safety Report 25741349 (Version 1)
Quarter: 2025Q3

REPORT INFORMATION
  Report Type: Spontaneous
  Country: US (occurrence: None)
  Receive Date: 20250829
  Receipt Date: 20250829
  Transmission Date: 20251020
  Serious: Yes (Other)
  Sender: FDA-CTU
  Company Number: None

PATIENT
  Age: 51 Year
  Sex: Female
  Weight: 88.65 kg

DRUGS (10)
  1. REYVOW [Suspect]
     Active Substance: LASMIDITAN
     Indication: Migraine
     Route: 048
     Dates: start: 20250827, end: 20250827
  2. Buproiprion [Concomitant]
  3. QULIPTA [Concomitant]
     Active Substance: ATOGEPANT
  4. UBRELVY [Concomitant]
     Active Substance: UBROGEPANT
  5. MAGNESIUM [Concomitant]
     Active Substance: MAGNESIUM
  6. VITAMIN B1 [Concomitant]
     Active Substance: THIAMINE HYDROCHLORIDE
  7. MULTI-VITAMIN [Concomitant]
     Active Substance: .ALPHA.-TOCOPHEROL ACETATE, DL-\ASCORBIC ACID\CYANOCOBALAMIN\FLUORIDE ION\FOLIC ACID\NIACIN\PYRIDOXI
  8. VITAMIN D3 [Concomitant]
     Active Substance: CHOLECALCIFEROL
  9. OMEGA 3 [Concomitant]
     Active Substance: CAPSAICIN
  10. B12 injectable [Concomitant]

REACTIONS (7)
  - Abnormal dreams [None]
  - Panic disorder [None]
  - Tremor [None]
  - Dyskinesia [None]
  - Nightmare [None]
  - Heart rate increased [None]
  - Blood pressure fluctuation [None]

NARRATIVE: CASE EVENT DATE: 20250827
